FAERS Safety Report 18196442 (Version 1)
Quarter: 2020Q3

REPORT INFORMATION
  Report Type: Spontaneous
  Country: PT (occurrence: PT)
  Receive Date: 20200826
  Receipt Date: 20200826
  Transmission Date: 20201103
  Serious: Yes (Other)
  Sender: FDA-Public Use
  Company Number: PT-TEVA-2020-PT-1819538

PATIENT
  Age: 74 Year
  Sex: Male

DRUGS (1)
  1. ZOLEDRONIC ACID [Suspect]
     Active Substance: ZOLEDRONIC ACID
     Indication: NEOPLASM PROSTATE
     Route: 042
     Dates: start: 2007, end: 20090302

REACTIONS (2)
  - Osteonecrosis [Recovered/Resolved with Sequelae]
  - Purulent discharge [Unknown]

NARRATIVE: CASE EVENT DATE: 20081021
